FAERS Safety Report 4484554-5 (Version None)
Quarter: 2004Q3

REPORT INFORMATION
  Report Type: 
  Country: None (occurrence: None)
  Receive Date: 20040921
  Receipt Date: 20031202
  Transmission Date: 20050211
  Serious: Yes (Other)
  Sender: FDA-Public Use
  Company Number: 163-20785-03120063(0)

PATIENT
  Age: 72 Year
  Sex: Female
  Weight: 71.4 kg

DRUGS (9)
  1. THALOMID [Suspect]
     Indication: GLIOBLASTOMA MULTIFORME
     Dosage: 250 MG, DAILY, ORAL
     Route: 048
     Dates: start: 20030904
  2. CELECOXIB (CELECOXIB) (UNKNOWN) [Suspect]
     Indication: GLIOBLASTOMA MULTIFORME
     Dosage: 200 MG, DAILY, ORAL
     Route: 048
     Dates: start: 20030905, end: 20031116
  3. ETOPOSIDE [Suspect]
     Indication: GLIOBLASTOMA MULTIFORME
     Dosage: 50 MG, EVERY 21 DAYS, ORAL
     Route: 048
     Dates: start: 20030905, end: 20031106
  4. CYCLOPHOSPHAMIDE [Suspect]
     Indication: GLIOBLASTOMA MULTIFORME
     Dosage: 100 MG, EVERY 21 DAYS, ORAL
     Route: 048
     Dates: start: 20030926, end: 20031125
  5. DECADRON [Concomitant]
  6. KEPPRA [Concomitant]
  7. LASIX [Concomitant]
  8. ZANTAC [Concomitant]
  9. CELEXA [Concomitant]

REACTIONS (4)
  - DEEP VEIN THROMBOSIS [None]
  - FIBRIN D DIMER INCREASED [None]
  - JOINT SWELLING [None]
  - OEDEMA PERIPHERAL [None]
